FAERS Safety Report 12845173 (Version 7)
Quarter: 2019Q1

REPORT INFORMATION
  Report Type: Report from Study
  Country: None (occurrence: IL)
  Receive Date: 20161013
  Receipt Date: 20190228
  Transmission Date: 20190417
  Serious: Yes (Death, Life-Threatening, Hospitalization)
  Sender: FDA-Public Use
  Company Number: IL-ABBVIE-16P-082-1749378-00

PATIENT
  Age: 83 Year
  Sex: Female

DRUGS (1)
  1. DUODOPA [Suspect]
     Active Substance: CARBIDOPA\LEVODOPA
     Indication: PARKINSON^S DISEASE
     Dosage: CURRENT MORNING DOSE- 8 ML, CURRENT FIXED RATE- 4 ML/ HOUR
     Route: 050
     Dates: start: 20140306

REACTIONS (7)
  - Device leakage [Not Recovered/Not Resolved]
  - Condition aggravated [Recovering/Resolving]
  - Pulmonary oedema [Not Recovered/Not Resolved]
  - Pneumonia [Not Recovered/Not Resolved]
  - Metabolic acidosis [Not Recovered/Not Resolved]
  - Renal failure [Not Recovered/Not Resolved]
  - Death [Fatal]

NARRATIVE: CASE EVENT DATE: 20161006
